FAERS Safety Report 10586783 (Version 1)
Quarter: 2014Q4

REPORT INFORMATION
  Report Type: Spontaneous
  Country: FR (occurrence: FR)
  Receive Date: 20141117
  Receipt Date: 20141117
  Transmission Date: 20150529
  Serious: Yes (Other)
  Sender: FDA-Public Use
  Company Number: FR-GLAXOSMITHKLINE-FR2014GSK014195

PATIENT
  Age: 75 Year
  Sex: Male

DRUGS (4)
  1. ADARTREL [Suspect]
     Active Substance: ROPINIROLE
     Dosage: 1 TABLET OF 0.25 MG DAILY
     Route: 048
     Dates: start: 201410, end: 20141029
  2. DIAMICRON [Concomitant]
     Active Substance: GLICLAZIDE
     Indication: DIABETES MELLITUS
  3. INSULINE [Concomitant]
     Active Substance: INSULIN NOS
     Indication: DIABETES MELLITUS
     Dosage: UNK
  4. ADARTREL [Suspect]
     Active Substance: ROPINIROLE
     Indication: RESTLESS LEGS SYNDROME
     Dosage: HALF OF 0.25 MG TABLET

REACTIONS (3)
  - Hyperglycaemia [Not Recovered/Not Resolved]
  - Wrong technique in drug usage process [Unknown]
  - Diabetes mellitus inadequate control [Not Recovered/Not Resolved]

NARRATIVE: CASE EVENT DATE: 201410
